FAERS Safety Report 11811102 (Version 1)
Quarter: 2015Q4

REPORT INFORMATION
  Report Type: Spontaneous
  Country: AU (occurrence: AU)
  Receive Date: 20151208
  Receipt Date: 20151208
  Transmission Date: 20160305
  Serious: Yes (Other)
  Sender: FDA-Public Use
  Company Number: AU-BD RX INC-2015BDR00635

PATIENT

DRUGS (3)
  1. DEXAMETHASONE SODIUM PHOSPHATE. [Suspect]
     Active Substance: DEXAMETHASONE SODIUM PHOSPHATE
     Indication: PLASMA CELL MYELOMA
     Dosage: 10 MG, 1X/DAY ON DAYS 1, 2, 4, 5, 8, 9, 11, 12, 15, 16, 22, AND 23 OF EVERY 28-DAY CYCLE
     Route: 065
  2. POMALIDOMIDE [Suspect]
     Active Substance: POMALIDOMIDE
     Indication: PLASMA CELL MYELOMA
     Dosage: 3 OR 4 MG, 1X/DAY ON DAYS 1 THROUGH 21 OF EVERY 28-DAY CYCLE
     Route: 065
  3. MARIZOMIB [Suspect]
     Active Substance: MARIZOMIB
     Indication: PLASMA CELL MYELOMA
     Dosage: 0.3 TO 0.5 MG/M^2 OVER 120 MINUTES ON DAYS 1, 4, 8, AND 11 OF EVERY 28-DAY CYCLE
     Route: 042

REACTIONS (1)
  - Tumour lysis syndrome [Unknown]
